FAERS Safety Report 14946396 (Version 3)
Quarter: 2018Q4

REPORT INFORMATION
  Report Type: Spontaneous
  Country: US (occurrence: US)
  Receive Date: 20180529
  Receipt Date: 20181107
  Transmission Date: 20190204
  Serious: Yes (Other)
  Sender: FDA-Public Use
  Company Number: US-SA-2018SA114227

PATIENT
  Age: 60 Year
  Sex: Female

DRUGS (2)
  1. KEVZARA [Suspect]
     Active Substance: SARILUMAB
     Indication: ARTHRITIS
     Dosage: 200 MG,QOW
     Route: 058
     Dates: start: 20180323
  2. XELJANZ [Concomitant]
     Active Substance: TOFACITINIB CITRATE

REACTIONS (6)
  - Cellulitis [Unknown]
  - Musculoskeletal pain [Unknown]
  - Foot operation [Recovering/Resolving]
  - Arthritis [Not Recovered/Not Resolved]
  - Drug ineffective [Unknown]
  - Product dose omission [Unknown]

NARRATIVE: CASE EVENT DATE: 201808
